FAERS Safety Report 24862003 (Version 2)
Quarter: 2025Q1

REPORT INFORMATION
  Report Type: Spontaneous
  Country: BR (occurrence: BR)
  Receive Date: 20250120
  Receipt Date: 20250123
  Transmission Date: 20250409
  Serious: Yes (Hospitalization, Disabling, Other)
  Sender: BIOCON
  Company Number: BR-BIOCON BIOLOGICS LIMITED-BBL2025000157

PATIENT

DRUGS (6)
  1. TRASTUZUMAB-DKST [Suspect]
     Active Substance: TRASTUZUMAB-DKST
     Indication: HER2 positive breast cancer
     Route: 042
  2. TRASTUZUMAB-DKST [Suspect]
     Active Substance: TRASTUZUMAB-DKST
     Route: 042
  3. CARBOPLATIN [Suspect]
     Active Substance: CARBOPLATIN
     Indication: HER2 positive breast cancer
     Route: 042
  4. DOCETAXEL [Suspect]
     Active Substance: DOCETAXEL
     Indication: HER2 positive breast cancer
     Route: 042
  5. GRANULOCYTE COLONY-STIMULATING FACTOR NOS [Concomitant]
     Active Substance: GRANULOCYTE COLONY-STIMULATING FACTOR NOS
     Indication: Product used for unknown indication
     Route: 065
  6. CIPROFLOXACIN [Concomitant]
     Active Substance: CIPROFLOXACIN
     Indication: Antibiotic prophylaxis
     Route: 065

REACTIONS (13)
  - Bone sequestrum [Unknown]
  - Gastrointestinal candidiasis [Unknown]
  - Hypokalaemia [Unknown]
  - Stomatitis [Unknown]
  - Osteonecrosis of jaw [Recovered/Resolved]
  - Osteonecrosis [Recovered/Resolved]
  - Myelosuppression [Unknown]
  - Thrombocytopenia [Unknown]
  - Mouth ulceration [Unknown]
  - Oral pain [Unknown]
  - Exposed bone in jaw [Recovered/Resolved]
  - Gingival hypertrophy [Unknown]
  - Drug interaction [Unknown]
